FAERS Safety Report 22360019 (Version 1)
Quarter: 2023Q2

REPORT INFORMATION
  Report Type: Spontaneous
  Country: US (occurrence: US)
  Receive Date: 20230524
  Receipt Date: 20230524
  Transmission Date: 20230721
  Serious: No
  Sender: FDA-Public Use
  Company Number: US-BAYER-2023A065196

PATIENT
  Age: 48 Year
  Sex: Female

DRUGS (1)
  1. MIRENA [Suspect]
     Active Substance: LEVONORGESTREL
     Indication: Endometrial adenocarcinoma
     Dosage: 20?G/DAY
     Route: 015
     Dates: start: 20230106, end: 20230111

REACTIONS (3)
  - Device expulsion [Recovered/Resolved]
  - Off label use [None]
  - Device use issue [None]

NARRATIVE: CASE EVENT DATE: 20230111
